FAERS Safety Report 13023629 (Version 1)
Quarter: 2016Q4

REPORT INFORMATION
  Report Type: Spontaneous
  Country: US (occurrence: US)
  Receive Date: 20161212
  Receipt Date: 20161212
  Transmission Date: 20170207
  Serious: No
  Sender: FDA-Public Use
  Company Number: None

PATIENT
  Age: 47 Year
  Sex: Female

DRUGS (1)
  1. LUPRON [Suspect]
     Active Substance: LEUPROLIDE ACETATE
     Indication: BENIGN UTERINE NEOPLASM
     Dosage: 3.75MG QMONTH IM
     Route: 030
     Dates: start: 20160324

REACTIONS (4)
  - Palpitations [None]
  - Musculoskeletal pain [None]
  - Peripheral swelling [None]
  - Arthralgia [None]

NARRATIVE: CASE EVENT DATE: 20161030
